FAERS Safety Report 6073144-9 (Version None)
Quarter: 2009Q1

REPORT INFORMATION
  Report Type: 
  Country: None (occurrence: None)
  Receive Date: 20090211
  Receipt Date: 20090202
  Transmission Date: 20090719
  Serious: Yes (Other)
  Sender: FDA-Public Use
  Company Number: BR-BAYER-200912002LA

PATIENT
  Age: 59 Year
  Sex: Female

DRUGS (4)
  1. BETAFERON [Suspect]
     Indication: MULTIPLE SCLEROSIS
     Route: 058
     Dates: start: 19990101
  2. ALDOMET [Concomitant]
     Indication: HYPERTENSION
     Route: 048
  3. PROPRANOLOL [Concomitant]
     Indication: ANGINA PECTORIS
     Route: 048
  4. AAS [Concomitant]
     Indication: HYPERTENSION
     Route: 048

REACTIONS (3)
  - CHROMATOPSIA [None]
  - GLAUCOMA [None]
  - VISUAL ACUITY REDUCED [None]
